FAERS Safety Report 9557093 (Version 1)
Quarter: 2013Q3

REPORT INFORMATION
  Report Type: Spontaneous
  Country: US (occurrence: None)
  Receive Date: 20130726
  Receipt Date: 20130726
  Transmission Date: 20140515
  Serious: Yes (Hospitalization)
  Sender: FDA-Public Use
  Company Number: UTC-024727

PATIENT
  Age: 66 Year
  Sex: Female

DRUGS (1)
  1. REMODULIN [Suspect]
     Indication: PULMONARY ARTERIAL HYPERTENSION
     Dosage: 0.002 UG/KG, 1 IN 1 MIN
     Route: 041
     Dates: start: 20120901

REACTIONS (4)
  - Vomiting [None]
  - Nausea [None]
  - Diarrhoea [None]
  - Renal failure [None]
